FAERS Safety Report 12292168 (Version 2)
Quarter: 2016Q2

REPORT INFORMATION
  Report Type: Report from Study
  Country: GR (occurrence: GR)
  Receive Date: 20160421
  Receipt Date: 20160429
  Transmission Date: 20160815
  Serious: Yes (Death, Hospitalization)
  Sender: FDA-Public Use
  Company Number: GR-AMGEN-GRCCT2016049918

PATIENT
  Sex: Male

DRUGS (4)
  1. DUROGESIC [Concomitant]
     Active Substance: FENTANYL
     Dosage: 25 MG, UNK
     Route: 048
     Dates: start: 20160301, end: 20160413
  2. KLOREF [Concomitant]
     Dosage: UNK
     Route: 048
     Dates: start: 20160405, end: 20160413
  3. DEXAMETHASONE. [Suspect]
     Active Substance: DEXAMETHASONE
     Indication: PLASMA CELL MYELOMA
     Dosage: UNK, PER CHEMO REGIM
     Route: 042
     Dates: start: 20160209
  4. CARFILZOMIB [Suspect]
     Active Substance: CARFILZOMIB
     Indication: PLASMA CELL MYELOMA
     Dosage: UNK UNK, PER CHEMO REGIM
     Route: 042
     Dates: start: 20160209

REACTIONS (1)
  - Blood creatinine increased [Fatal]

NARRATIVE: CASE EVENT DATE: 20160412
